FAERS Safety Report 5519708-X (Version None)
Quarter: 2007Q4

REPORT INFORMATION
  Report Type: 
  Country: None (occurrence: None)
  Receive Date: 20071116
  Receipt Date: 20071112
  Transmission Date: 20080405
  Serious: Yes (Other)
  Sender: FDA-Public Use
  Company Number: US-JNJFOC-20071105370

PATIENT
  Sex: Female
  Weight: 78.47 kg

DRUGS (6)
  1. TOPAMAX [Suspect]
     Route: 048
  2. TOPAMAX [Suspect]
     Route: 048
  3. TOPAMAX [Suspect]
     Route: 048
  4. TOPAMAX [Suspect]
     Route: 048
  5. TOPAMAX [Suspect]
     Indication: MIGRAINE PROPHYLAXIS
     Route: 048
  6. SPRINTEC [Concomitant]
     Indication: CONTRACEPTION

REACTIONS (8)
  - ANOREXIA [None]
  - DYSPHAGIA [None]
  - FEELING ABNORMAL [None]
  - FUNNEL CHEST ACQUIRED [None]
  - HYPOAESTHESIA [None]
  - PALPITATIONS [None]
  - PANIC ATTACK [None]
  - WEIGHT DECREASED [None]
